FAERS Safety Report 10064638 (Version 1)
Quarter: 2014Q2

REPORT INFORMATION
  Report Type: Spontaneous
  Country: US (occurrence: None)
  Receive Date: 20140404
  Receipt Date: 20140404
  Transmission Date: 20141212
  Serious: Yes (Other)
  Sender: FDA-Public Use
  Company Number: FK201401056

PATIENT
  Age: 29 Year
  Sex: Female

DRUGS (5)
  1. BUPIVACAINE (MANUFACTURER UNKNOWN) (BUPIVACAINE) (BUPIVACAINE) [Suspect]
     Indication: SPINAL ANAESTHESIA
  2. MORPHINE (MORPHINE) [Concomitant]
  3. FENTANYL (FENTANYL) [Concomitant]
  4. PHENYLEPHRINE (PHENYLEPHRINE) [Concomitant]
  5. OXYTOCIN (OXYTOCIN) [Concomitant]

REACTIONS (3)
  - Acute coronary syndrome [None]
  - Arteriospasm coronary [None]
  - Hypotension [None]
